FAERS Safety Report 9713736 (Version 2)
Quarter: 2013Q4

REPORT INFORMATION
  Report Type: Spontaneous
  Country: US (occurrence: US)
  Receive Date: 20131126
  Receipt Date: 20131126
  Transmission Date: 20140711
  Serious: Yes (Disabling, Other)
  Sender: FDA-Public Use
  Company Number: US-TEVA-274765USA

PATIENT
  Sex: Male

DRUGS (4)
  1. METOCLOPRAMIDE [Suspect]
     Indication: ABDOMINAL DISTENSION
  2. METOCLOPRAMIDE [Suspect]
     Indication: DYSPEPSIA
  3. METOCLOPRAMIDE [Suspect]
     Indication: ABDOMINAL DISTENSION
  4. METOCLOPRAMIDE [Suspect]
     Indication: DYSPEPSIA

REACTIONS (10)
  - Tardive dyskinesia [Unknown]
  - Nervous system disorder [Unknown]
  - Extrapyramidal disorder [Unknown]
  - Depression [Unknown]
  - Anxiety [Unknown]
  - Pain in extremity [Unknown]
  - Bruxism [Unknown]
  - Memory impairment [Unknown]
  - Migraine [Unknown]
  - Muscle spasms [Unknown]
